FAERS Safety Report 5218183-2 (Version None)
Quarter: 2007Q1

REPORT INFORMATION
  Report Type: 
  Country: None (occurrence: None)
  Receive Date: 20070124
  Receipt Date: 20070112
  Transmission Date: 20070707
  Serious: Yes (Hospitalization)
  Sender: FDA-Public Use
  Company Number: US-PFIZER INC-2006107237

PATIENT
  Sex: Male
  Weight: 108 kg

DRUGS (11)
  1. SUTENT [Suspect]
     Indication: NON-SMALL CELL LUNG CANCER
     Route: 048
     Dates: start: 20060612, end: 20060821
  2. CALCIUM [Concomitant]
     Route: 048
  3. VITAMIN CAP [Concomitant]
     Dosage: TEXT:1 TABLET
     Route: 048
     Dates: start: 20000101
  4. ADVIL [Concomitant]
     Dosage: TEXT:2 TABLETS
     Route: 048
  5. SPIRIVA [Concomitant]
     Route: 055
     Dates: start: 20060206
  6. BUDESONIDE [Concomitant]
     Route: 055
     Dates: start: 20060206
  7. PROTONIX [Concomitant]
     Route: 048
     Dates: start: 20060128
  8. ZOLOFT [Concomitant]
     Route: 048
     Dates: start: 20051229
  9. LORAZEPAM [Concomitant]
     Route: 048
  10. OXYCODONE HCL [Concomitant]
     Route: 048
     Dates: start: 20060228
  11. OXYCONTIN [Concomitant]
     Route: 048
     Dates: start: 20060228

REACTIONS (2)
  - PAIN [None]
  - PNEUMONIA [None]
